FAERS Safety Report 6241748-6 (Version None)
Quarter: 2009Q2

REPORT INFORMATION
  Report Type: 
  Country: None (occurrence: None)
  Receive Date: 20090623
  Receipt Date: 20031021
  Transmission Date: 20091009
  Serious: Yes (Life-Threatening, Hospitalization, Other)
  Sender: FDA-Public Use
  Company Number: GB-ROCHE-349694

PATIENT
  Sex: Male
  Weight: 92.2 kg

DRUGS (43)
  1. DACLIZUMAB [Suspect]
     Route: 042
     Dates: start: 20030607, end: 20030607
  2. DACLIZUMAB [Suspect]
     Route: 042
     Dates: start: 20030620, end: 20030730
  3. MYCOPHENOLATE MOFETIL [Suspect]
     Route: 048
     Dates: start: 20030608
  4. MYCOPHENOLATE MOFETIL [Suspect]
     Route: 048
     Dates: start: 20030919
  5. MYCOPHENOLATE MOFETIL [Suspect]
     Route: 048
     Dates: start: 20031115
  6. MYCOPHENOLATE MOFETIL [Suspect]
     Route: 048
     Dates: start: 20031128
  7. SIROLIMUS [Suspect]
     Route: 048
     Dates: start: 20030607
  8. SIROLIMUS [Suspect]
     Route: 048
     Dates: start: 20030709
  9. SIROLIMUS [Suspect]
     Route: 048
     Dates: start: 20031021, end: 20031119
  10. PREDNISOLONE [Suspect]
     Route: 048
     Dates: start: 20030607
  11. ASPIRIN [Concomitant]
     Route: 048
     Dates: start: 20030607
  12. OMEPRAZOLE [Concomitant]
     Route: 048
     Dates: start: 20030607, end: 20031029
  13. CO-TRIMOXAZOLE [Concomitant]
     Route: 048
     Dates: start: 20030607, end: 20031209
  14. NIFEDIPINE [Concomitant]
     Route: 048
     Dates: start: 20030607, end: 20031025
  15. ATENOLOL [Concomitant]
     Route: 048
     Dates: start: 20030612
  16. ATENOLOL [Concomitant]
     Route: 048
     Dates: start: 20031104
  17. FRUSEMIDE [Concomitant]
     Route: 048
     Dates: start: 20030608
  18. FRUSEMIDE [Concomitant]
     Route: 048
     Dates: start: 20030614
  19. FRUSEMIDE [Concomitant]
     Route: 048
     Dates: start: 20030725
  20. CEPHALEXIN [Concomitant]
     Route: 048
     Dates: start: 20031020, end: 20031021
  21. CEFOTAXIME [Concomitant]
     Route: 042
     Dates: start: 20031024
  22. CLARITHROMYCIN [Concomitant]
     Dates: start: 20031024
  23. TAZOCIN [Concomitant]
     Route: 042
     Dates: start: 20031024
  24. CIPROFLOXACIN [Concomitant]
     Route: 042
     Dates: start: 20031024
  25. AUGMENTIN [Concomitant]
     Route: 042
     Dates: start: 20030607
  26. WHOLE BLOOD [Concomitant]
     Route: 042
     Dates: start: 20030608
  27. WHOLE BLOOD [Concomitant]
     Route: 042
     Dates: start: 20031022
  28. WHOLE BLOOD [Concomitant]
     Route: 042
     Dates: start: 20031026
  29. WHOLE BLOOD [Concomitant]
     Route: 042
     Dates: start: 20031110
  30. DEXTROSE/INSULIN [Concomitant]
     Route: 042
     Dates: start: 20030608
  31. DOPAMINE HCL [Concomitant]
     Route: 042
     Dates: start: 20030607
  32. ENOXAPARIN SODIUM [Concomitant]
     Route: 058
     Dates: start: 20030609, end: 20030615
  33. EPOGEN [Concomitant]
     Route: 058
     Dates: start: 19991112, end: 19991223
  34. EPOGEN [Concomitant]
     Route: 058
     Dates: start: 20031126
  35. FRUSEMIDE [Concomitant]
     Route: 042
     Dates: start: 20030607
  36. GANCICLOVIR [Concomitant]
     Dosage: DRUG REPORTED: GANCYCLOVIR
     Route: 048
     Dates: start: 20030609, end: 20030927
  37. METHYLPREDNISOLONE [Suspect]
     Route: 042
     Dates: start: 20030607, end: 20030610
  38. METHYLPREDNISOLONE [Suspect]
     Route: 042
     Dates: start: 20031107
  39. MORPHINE [Concomitant]
     Route: 042
     Dates: start: 20030607
  40. PARACETAMOL [Concomitant]
     Route: 048
     Dates: start: 20030608, end: 20030611
  41. SANDO K [Concomitant]
     Dosage: AMOUNT REPORTED: 2
     Route: 048
     Dates: start: 20030610, end: 20030620
  42. TACROLIMUS [Suspect]
     Route: 048
     Dates: start: 20031114
  43. CYCLOSPORINE [Suspect]
     Route: 065

REACTIONS (3)
  - ACID FAST BACILLI INFECTION [None]
  - HAEMOGLOBIN DECREASED [None]
  - PNEUMONIA [None]
